FAERS Safety Report 11500595 (Version 2)
Quarter: 2016Q1

REPORT INFORMATION
  Report Type: Spontaneous
  Country: US (occurrence: US)
  Receive Date: 20150914
  Receipt Date: 20160321
  Transmission Date: 20160525
  Serious: No
  Sender: FDA-Public Use
  Company Number: US-PFIZER INC-2015305461

PATIENT
  Age: 41 Year
  Sex: Female

DRUGS (8)
  1. LYRICA [Suspect]
     Active Substance: PREGABALIN
     Dosage: AT 75 MG TWICE A DAY
     Dates: start: 20160114
  2. NEURONTIN [Suspect]
     Active Substance: GABAPENTIN
     Dosage: AT 300 MG, ONE CAPSULE TWICE A DAY AND TWO CAPSULES EVERY NIGHT AT BEDTIME
     Route: 048
     Dates: start: 20151119
  3. BACLOFEN. [Suspect]
     Active Substance: BACLOFEN
     Dosage: UNK
  4. MORPHINE SULFATE. [Suspect]
     Active Substance: MORPHINE SULFATE
     Dosage: AT 30 MG ,TWICE A DAY
     Route: 048
     Dates: start: 20151231
  5. OXYCODONE [Suspect]
     Active Substance: OXYCODONE
     Dosage: UNK
  6. METHADONE HCL [Suspect]
     Active Substance: METHADONE HYDROCHLORIDE
     Dosage: 5 MG, 2X/DAY
     Route: 048
     Dates: start: 20151230
  7. LYRICA [Suspect]
     Active Substance: PREGABALIN
     Dosage: AT 50MG THREE TIMES A DAY
     Route: 048
  8. ZANAFLEX [Suspect]
     Active Substance: TIZANIDINE HYDROCHLORIDE
     Dosage: 4 MG, AS NEEDED (DAILY)
     Route: 048
     Dates: start: 20151119

REACTIONS (1)
  - Drug effect incomplete [Unknown]
